FAERS Safety Report 6875615-1 (Version None)
Quarter: 2010Q3

REPORT INFORMATION
  Report Type: 
  Country: None (occurrence: None)
  Receive Date: 20100727
  Receipt Date: 20100716
  Transmission Date: 20110219
  Serious: No
  Sender: FDA-Public Use
  Company Number: US-JNJFOC-20100705881

PATIENT
  Sex: Male
  Weight: 103.42 kg

DRUGS (2)
  1. FENTANYL-100 [Suspect]
     Indication: INTERVERTEBRAL DISC DEGENERATION
     Route: 062
  2. SANDOZ FENTANYL TRANSDERMAL SYSTEM [Suspect]
     Indication: INTERVERTEBRAL DISC DEGENERATION
     Dosage: NDC NUMBER - 0781-7240-55
     Route: 062

REACTIONS (7)
  - DECREASED APPETITE [None]
  - DRUG DOSE OMISSION [None]
  - NIGHT SWEATS [None]
  - PAIN [None]
  - TREMOR [None]
  - WITHDRAWAL SYNDROME [None]
  - WRONG TECHNIQUE IN DRUG USAGE PROCESS [None]
